FAERS Safety Report 5977696-6 (Version None)
Quarter: 2008Q4

REPORT INFORMATION
  Report Type: 
  Country: None (occurrence: None)
  Receive Date: 20081203
  Receipt Date: 20081126
  Transmission Date: 20090506
  Serious: Yes (Hospitalization, Other)
  Sender: FDA-Public Use
  Company Number: GB-ROCHE-595975

PATIENT
  Sex: Female
  Weight: 108 kg

DRUGS (1)
  1. ORLISTAT [Suspect]
     Indication: OBESITY
     Route: 048
     Dates: start: 20080424, end: 20081025

REACTIONS (3)
  - FALL [None]
  - HEADACHE [None]
  - NERVOUS SYSTEM DISORDER [None]
